FAERS Safety Report 8015586-8 (Version None)
Quarter: 2011Q4

REPORT INFORMATION
  Report Type: 
  Country: None (occurrence: None)
  Receive Date: 20111230
  Receipt Date: 20111227
  Transmission Date: 20120403
  Serious: No
  Sender: FDA-Public Use
  Company Number: US-B.I. PHARMACEUTICALS,INC./RIDGEFIELD-2011-BP-28860BP

PATIENT
  Sex: Female

DRUGS (7)
  1. PRADAXA [Suspect]
     Indication: ATRIAL FIBRILLATION
     Dosage: 300 MG
     Route: 048
     Dates: start: 20111216, end: 20111227
  2. METOPROLOL TARTRATE [Concomitant]
     Dosage: 100 MG
     Route: 048
  3. ACETAMINOPHEN [Concomitant]
     Indication: PAIN
     Route: 048
  4. DILTIAZEM HCL [Concomitant]
     Dosage: 180 MG
     Route: 048
  5. PRAVASTATIN [Concomitant]
     Dosage: 40 MG
     Route: 048
  6. DIGOXIN [Concomitant]
     Dosage: 125 MG
     Route: 048
  7. LISINOPRIL [Concomitant]
     Dosage: 40 MG
     Route: 048

REACTIONS (3)
  - DYSPEPSIA [None]
  - MELAENA [None]
  - INTERNATIONAL NORMALISED RATIO [None]
